FAERS Safety Report 21032923 (Version 1)
Quarter: 2022Q3

REPORT INFORMATION
  Report Type: Spontaneous
  Country: US (occurrence: US)
  Receive Date: 20220701
  Receipt Date: 20220701
  Transmission Date: 20221027
  Serious: No
  Sender: FDA-Public Use
  Company Number: US-BoehringerIngelheim-2022-BI-179466

PATIENT
  Age: 62 Year
  Sex: Female

DRUGS (4)
  1. JARDIANCE [Suspect]
     Active Substance: EMPAGLIFLOZIN
     Indication: Product used for unknown indication
  2. TRULICITY [Suspect]
     Active Substance: DULAGLUTIDE
     Indication: Product used for unknown indication
  3. TRULICITY [Suspect]
     Active Substance: DULAGLUTIDE
  4. METFORMIN [Suspect]
     Active Substance: METFORMIN HYDROCHLORIDE
     Indication: Product used for unknown indication

REACTIONS (5)
  - Diarrhoea [Recovered/Resolved]
  - Injection site mass [Unknown]
  - Nausea [Recovered/Resolved]
  - Injection site pain [Unknown]
  - Glycosylated haemoglobin decreased [Unknown]
